FAERS Safety Report 5890562-X (Version None)
Quarter: 2008Q3

REPORT INFORMATION
  Report Type: 
  Country: None (occurrence: None)
  Receive Date: 20080922
  Receipt Date: 20080820
  Transmission Date: 20090109
  Serious: No
  Sender: FDA-Public Use
  Company Number: US-BAYER-200832661NA

PATIENT
  Sex: Female

DRUGS (1)
  1. AVELOX [Suspect]
     Indication: PNEUMONIA
     Dosage: AS USED: 400 MG  UNIT DOSE: 400 MG
     Route: 048

REACTIONS (3)
  - HYPERSENSITIVITY [None]
  - NAUSEA [None]
  - PALPITATIONS [None]
